FAERS Safety Report 8146140-5 (Version None)
Quarter: 2012Q1

REPORT INFORMATION
  Report Type: 
  Country: None (occurrence: None)
  Receive Date: 20120217
  Receipt Date: 20120213
  Transmission Date: 20120608
  Serious: Yes (Other)
  Sender: FDA-Public Use
  Company Number: BR-PFIZER INC-2012038423

PATIENT
  Age: 61 Year
  Sex: Male

DRUGS (2)
  1. MYTEDON [Concomitant]
     Indication: PAIN
     Dosage: UNK
     Dates: start: 20060101
  2. ALPRAZOLAM [Suspect]
     Indication: PAIN
     Dosage: 1 MG, UNK
     Route: 048
     Dates: start: 20070728, end: 20090101

REACTIONS (2)
  - FIBROMYALGIA [None]
  - HYPERTENSION [None]
